FAERS Safety Report 8775329 (Version 3)
Quarter: 2013Q4

REPORT INFORMATION
  Report Type: Spontaneous
  Country: US (occurrence: US)
  Receive Date: 20120910
  Receipt Date: 20131113
  Transmission Date: 20140711
  Serious: Yes (Life-Threatening, Hospitalization, Other)
  Sender: FDA-Public Use
  Company Number: US-009507513-1209USA001982

PATIENT
  Age: 70 Year
  Sex: Female
  Weight: 73.47 kg

DRUGS (10)
  1. JANUVIA [Suspect]
     Indication: TYPE 2 DIABETES MELLITUS
     Dosage: 100 MG, QD
     Route: 048
  2. DEXILANT [Concomitant]
  3. GEMFIBROZIL [Concomitant]
  4. GLIPIZIDE [Concomitant]
  5. IBUPROFEN [Concomitant]
  6. LEVOTHYROXINE SODIUM [Concomitant]
  7. LISINOPRIL [Concomitant]
  8. METFORMIN [Concomitant]
  9. SIMVASTATIN [Concomitant]
  10. VITAMINS (UNSPECIFIED) [Concomitant]

REACTIONS (3)
  - Renal failure acute [Recovering/Resolving]
  - Pancreatitis [Recovering/Resolving]
  - Hyperkalaemia [Unknown]
